FAERS Safety Report 4919118-X (Version None)
Quarter: 2006Q1

REPORT INFORMATION
  Report Type: 
  Country: None (occurrence: None)
  Receive Date: 20060222
  Receipt Date: 20051005
  Transmission Date: 20060701
  Serious: Yes (Hospitalization)
  Sender: FDA-Public Use
  Company Number: US-MERCK-0510USA03984

PATIENT
  Age: 63 Year
  Sex: Male
  Weight: 109 kg

DRUGS (15)
  1. VIOXX [Suspect]
     Indication: OSTEOARTHRITIS
     Route: 048
     Dates: start: 20000201, end: 20040501
  2. VIOXX [Suspect]
     Route: 048
     Dates: start: 20040501, end: 20040525
  3. VIOXX [Suspect]
     Route: 048
     Dates: start: 20040621, end: 20040901
  4. VIOXX [Suspect]
     Indication: ARTHRITIS
     Route: 048
     Dates: start: 20000201, end: 20040501
  5. VIOXX [Suspect]
     Route: 048
     Dates: start: 20040501, end: 20040525
  6. VIOXX [Suspect]
     Route: 048
     Dates: start: 20040621, end: 20040901
  7. ALBUTEROL [Concomitant]
     Route: 065
  8. ASPIRIN [Concomitant]
     Route: 065
  9. CLONIDINE [Concomitant]
     Route: 065
  10. LOPRESSOR [Concomitant]
     Route: 065
  11. POTASSIUM (UNSPECIFIED) [Concomitant]
     Route: 065
  12. PREVACID [Concomitant]
     Route: 065
  13. PRINZIDE [Concomitant]
     Route: 065
  14. STARLIX [Concomitant]
     Route: 065
  15. VITAMIN E [Concomitant]
     Route: 065

REACTIONS (23)
  - ARTHROPATHY [None]
  - BACK DISORDER [None]
  - BACK PAIN [None]
  - BENIGN PROSTATIC HYPERPLASIA [None]
  - CONSTIPATION [None]
  - DEEP VEIN THROMBOSIS [None]
  - DYSPEPSIA [None]
  - EYE DISORDER [None]
  - GASTROOESOPHAGEAL REFLUX DISEASE [None]
  - HYPERSENSITIVITY [None]
  - HYPERTENSION [None]
  - HYPOTHYROIDISM [None]
  - INCORRECT DOSE ADMINISTERED [None]
  - LUMBAR SPINAL STENOSIS [None]
  - OEDEMA [None]
  - OEDEMA PERIPHERAL [None]
  - OSTEOARTHRITIS [None]
  - OVERDOSE [None]
  - RENAL DISORDER [None]
  - SPINAL OSTEOARTHRITIS [None]
  - STOMACH DISCOMFORT [None]
  - THROMBOSIS [None]
  - VITAMIN B12 DEFICIENCY [None]
